FAERS Safety Report 6620408-3 (Version None)
Quarter: 2010Q1

REPORT INFORMATION
  Report Type: 
  Country: None (occurrence: None)
  Receive Date: 20100309
  Receipt Date: 20100226
  Transmission Date: 20100710
  Serious: Yes (Other)
  Sender: FDA-Public Use
  Company Number: BR-BAXTER-2010BH005585

PATIENT
  Age: 7 Year

DRUGS (1)
  1. DIANEAL [Suspect]
     Indication: PERITONEAL DIALYSIS
     Route: 033
     Dates: start: 20100210

REACTIONS (4)
  - ABDOMINAL DISTENSION [None]
  - HYPERHIDROSIS [None]
  - OVERDOSE [None]
  - OXYGEN SATURATION DECREASED [None]
